FAERS Safety Report 15677234 (Version 3)
Quarter: 2019Q4

REPORT INFORMATION
  Report Type: Spontaneous
  Country: ES (occurrence: ES)
  Receive Date: 20181130
  Receipt Date: 20191219
  Transmission Date: 20200122
  Serious: Yes (Other)
  Sender: FDA-Public Use
  Company Number: ES-TEVA-2018-ES-983547

PATIENT
  Age: 46 Year
  Sex: Female
  Weight: 76.2 kg

DRUGS (9)
  1. TERBASMIN [Concomitant]
     Active Substance: TERBUTALINE SULFATE
     Dosage: 2 INHALATIONS IF NECESSARY DUE TO LACK OF AIR DESPITE TREATMENT WITH FOSTER AND SPIRIVA.
     Route: 055
  2. RESLIZUMAB [Suspect]
     Active Substance: RESLIZUMAB
     Dosage: 8.0357 MILLIGRAM DAILY; 225 MG W / 4 WEEKS
     Route: 042
     Dates: start: 20180828, end: 20180925
  3. CETIRIZEN [Concomitant]
     Dosage: ONE TABLET PER DAY IF NEEDED DUE TO ALLERGY.
     Route: 048
  4. SINGULAIR [Concomitant]
     Active Substance: MONTELUKAST SODIUM
     Dosage: 1 TAB AT BEDTIME.
     Route: 048
  5. SPIRIVA RESPIMAT [Concomitant]
     Active Substance: TIOTROPIUM BROMIDE
     Dosage: 2 INHALATIONS TOGETHER ONCE A DAY, RINSING THE MOUTH LATER
     Route: 055
  6. FOSTER NH 200 [Concomitant]
     Dosage: 2 INHALATIONS IN THE MORNING 2 INHALATIONS AT NIGHT, RINSING THE MOUTH LATER.
     Route: 055
  7. NEXIUM [Concomitant]
     Active Substance: ESOMEPRAZOLE MAGNESIUM
     Dosage: ONE CAPSULE IN THE MORNING
     Route: 048
  8. BUDESONIDA NASAL 100 [Concomitant]
     Dosage: 2 APPLICATIONS IN EACH NOSTRIL ONCE A DAY
     Route: 045
  9. TEOFILINA 200 MG COMPRIMIDO LIBERACI?N MODIFICADA [Concomitant]
     Dosage: COMPRESSED IN THE MORNING AND ANOTHER AT NIGHT
     Route: 048

REACTIONS (5)
  - Joint stiffness [Recovering/Resolving]
  - Myalgia [Recovering/Resolving]
  - Pyrexia [Recovering/Resolving]
  - Hypoaesthesia [Recovering/Resolving]
  - Arthritis [Recovering/Resolving]

NARRATIVE: CASE EVENT DATE: 20180925
